FAERS Safety Report 6784948 (Version 2)
Quarter: 2017Q3

REPORT INFORMATION
  Report Type: Spontaneous
  Country: US (occurrence: US)
  Receive Date: 20081010
  Receipt Date: 20170710
  Transmission Date: 20171128
  Serious: No
  Sender: FDA-Public Use
  Company Number: US-B.I. PHARMACEUTICALS,INC./RIDGEFIELD-2008-BP-15405BP

PATIENT
  Age: 83 Year
  Sex: Male

DRUGS (1)
  1. SIFROL [Suspect]
     Active Substance: PRAMIPEXOLE
     Indication: RESTLESS LEGS SYNDROME
     Route: 048
     Dates: start: 200809, end: 20081002

REACTIONS (2)
  - Feeling abnormal [Recovered/Resolved]
  - Hiccups [Recovered/Resolved]
